FAERS Safety Report 23635673 (Version 1)
Quarter: 2024Q1

REPORT INFORMATION
  Report Type: Spontaneous
  Country: US (occurrence: US)
  Receive Date: 20240315
  Receipt Date: 20240315
  Transmission Date: 20240410
  Serious: Yes (Death, Hospitalization)
  Sender: FDA-Public Use
  Company Number: US-NOVITIUMPHARMA-2024USNVP00248

PATIENT
  Age: 37 Year
  Sex: Female

DRUGS (8)
  1. LACOSAMIDE [Suspect]
     Active Substance: LACOSAMIDE
     Indication: New onset refractory status epilepticus
  2. BRIVARACETAM [Concomitant]
     Active Substance: BRIVARACETAM
     Indication: New onset refractory status epilepticus
  3. CENOBAMATE [Concomitant]
     Active Substance: CENOBAMATE
     Indication: New onset refractory status epilepticus
  4. LEVOCARNITINE [Concomitant]
     Active Substance: LEVOCARNITINE
     Indication: New onset refractory status epilepticus
  5. PERAMPANEL [Concomitant]
     Active Substance: PERAMPANEL
     Indication: New onset refractory status epilepticus
  6. ZONISAMIDE [Concomitant]
     Active Substance: ZONISAMIDE
     Indication: New onset refractory status epilepticus
  7. KETAMINE [Concomitant]
     Active Substance: KETAMINE
     Indication: New onset refractory status epilepticus
  8. PENTOBARBITAL [Concomitant]
     Active Substance: PENTOBARBITAL
     Indication: New onset refractory status epilepticus

REACTIONS (1)
  - Drug ineffective [Fatal]
